FAERS Safety Report 4575970-1 (Version None)
Quarter: 2005Q1

REPORT INFORMATION
  Report Type: 
  Country: None (occurrence: None)
  Receive Date: 20050204
  Receipt Date: 20050127
  Transmission Date: 20050727
  Serious: Yes (Disabling)
  Sender: FDA-Public Use
  Company Number: 2005-01-1853

PATIENT
  Age: 24 Month
  Sex: Male
  Weight: 6 kg

DRUGS (1)
  1. INTRON A [Suspect]
     Indication: HAEMANGIOMA
     Dosage: 1.0 MIU QD SUBCUTANEOUS
     Route: 058
     Dates: start: 20020612, end: 20030425

REACTIONS (2)
  - DIPLEGIA [None]
  - SPASTIC PARALYSIS [None]
